FAERS Safety Report 6657502-7 (Version None)
Quarter: 2010Q1

REPORT INFORMATION
  Report Type: 
  Country: None (occurrence: None)
  Receive Date: 20100330
  Receipt Date: 20100326
  Transmission Date: 20100710
  Serious: Yes (Death, Other)
  Sender: FDA-Public Use
  Company Number: PHHY2009JP53666

PATIENT
  Age: 55 Year
  Sex: Female

DRUGS (1)
  1. GLEEVEC [Suspect]
     Indication: PULMONARY ARTERIAL HYPERTENSION
     Dosage: 50 MG DAILY
     Route: 048
     Dates: start: 20081128, end: 20081216

REACTIONS (3)
  - DISEASE PROGRESSION [None]
  - PULMONARY ARTERIAL HYPERTENSION [None]
  - RASH [None]
